FAERS Safety Report 10199665 (Version 1)
Quarter: 2014Q2

REPORT INFORMATION
  Report Type: Report from Study
  Country: CN (occurrence: CN)
  Receive Date: 20140527
  Receipt Date: 20140527
  Transmission Date: 20141212
  Serious: Yes (Death)
  Sender: FDA-Public Use
  Company Number: CN-SA-2014SA068441

PATIENT
  Sex: 0

DRUGS (9)
  1. FLUDARABINE PHOSPHATE [Suspect]
     Indication: BONE MARROW CONDITIONING REGIMEN
     Dosage: ON DAYS -6, -5, -4, -3, -2
     Route: 042
  2. BUSULFAN [Concomitant]
     Indication: BONE MARROW CONDITIONING REGIMEN
     Dosage: DOSE: 0.8 MG/KG, 1 TIME/6 HOUR, -6, -5, -4 DAYS
     Route: 042
  3. ARA-C [Concomitant]
     Indication: BONE MARROW CONDITIONING REGIMEN
     Dosage: ON DAYS -9,-8,-7 DOSE:2 GRAM(S)/SQUARE METER
     Route: 042
  4. ANTINEOPLASTIC AGENTS [Concomitant]
     Indication: BONE MARROW CONDITIONING REGIMEN
     Route: 048
  5. CYCLOSPORIN [Concomitant]
     Indication: IMMUNOSUPPRESSANT DRUG THERAPY
  6. CYCLOSPORIN [Concomitant]
     Indication: IMMUNOSUPPRESSANT DRUG THERAPY
     Dosage: STARTED FROM -10 DAYS GENERALLY
     Route: 042
  7. MYCOPHENOLATE MOFETIL [Concomitant]
     Indication: IMMUNOSUPPRESSANT DRUG THERAPY
     Dosage: FROM - 10 DAY
     Route: 048
  8. METHOTREXATE [Concomitant]
     Indication: IMMUNOSUPPRESSANT DRUG THERAPY
     Dosage: INFUSION ON DAYS +1 DAY
  9. GRANULOCYTE COLONY-STIMULATING FACTOR NOS [Concomitant]
     Dosage: APPROX. 5- 10 MCG/KG EVERY DAY
     Route: 058

REACTIONS (2)
  - Epstein-Barr virus associated lymphoproliferative disorder [Fatal]
  - Off label use [Fatal]
